FAERS Safety Report 5814570-X (Version None)
Quarter: 2008Q3

REPORT INFORMATION
  Report Type: 
  Country: None (occurrence: None)
  Receive Date: 20080718
  Receipt Date: 20071009
  Transmission Date: 20090109
  Serious: No
  Sender: FDA-Public Use
  Company Number: US-KINGPHARMUSA00001-K200701317

PATIENT

DRUGS (6)
  1. LEVOXYL [Suspect]
     Indication: HYPOTHYROIDISM
     Dosage: 100 MCG, QD
     Route: 048
     Dates: start: 20060101, end: 20070101
  2. LEVOXYL [Suspect]
     Dosage: 112 MCG, QD
     Route: 048
     Dates: start: 20070101
  3. INHALER (UNSPECIFIED) [Concomitant]
     Indication: DYSPNOEA
  4. NEBULIZER [Concomitant]
     Indication: DYSPNOEA
  5. OXYGEN [Concomitant]
     Indication: DYSPNOEA
  6. COZAAR [Concomitant]
     Indication: RENAL DISORDER

REACTIONS (3)
  - DYSPNOEA [None]
  - FATIGUE [None]
  - THYROID FUNCTION TEST ABNORMAL [None]
